FAERS Safety Report 18998219 (Version 4)
Quarter: 2021Q2

REPORT INFORMATION
  Report Type: Report from Study
  Country: US (occurrence: US)
  Receive Date: 20210311
  Receipt Date: 20210525
  Transmission Date: 20210717
  Serious: Yes (Hospitalization)
  Sender: FDA-Public Use
  Company Number: US-GILEAD-2021-0514290

PATIENT
  Age: 73 Year
  Sex: Female

DRUGS (3)
  1. VELETRI [Suspect]
     Active Substance: EPOPROSTENOL
     Indication: PULMONARY ARTERIAL HYPERTENSION
     Dosage: 5.5 NG, Q1SECOND
     Route: 042
     Dates: start: 20210210
  2. AMBRISENTAN [Suspect]
     Active Substance: AMBRISENTAN
     Indication: PULMONARY ARTERIAL HYPERTENSION
     Dosage: 10 MG, QD
     Route: 065
     Dates: start: 20200909
  3. VELETRI [Suspect]
     Active Substance: EPOPROSTENOL
     Dosage: 1.5 MG/VL, CONTINUOUSLY, AT A RATE OF 78 NKM
     Route: 042
     Dates: start: 20210210

REACTIONS (6)
  - Pain in jaw [Not Recovered/Not Resolved]
  - Dehydration [Recovered/Resolved]
  - Weight increased [Recovered/Resolved]
  - Oedema [Unknown]
  - Fluid overload [Unknown]
  - Diarrhoea [Not Recovered/Not Resolved]

NARRATIVE: CASE EVENT DATE: 20210503
